FAERS Safety Report 6460818-0 (Version None)
Quarter: 2009Q4

REPORT INFORMATION
  Report Type: 
  Country: None (occurrence: None)
  Receive Date: 20091125
  Receipt Date: 20091125
  Transmission Date: 20100525
  Serious: Yes (Other)
  Sender: FDA-Public Use
  Company Number: None

PATIENT
  Age: 4 Year
  Sex: Male
  Weight: 20.8655 kg

DRUGS (1)
  1. TAMIFLU [Suspect]

REACTIONS (3)
  - FEELING JITTERY [None]
  - IRRITABILITY [None]
  - NIGHTMARE [None]
